FAERS Safety Report 6282926-X (Version None)
Quarter: 2009Q3

REPORT INFORMATION
  Report Type: 
  Country: None (occurrence: None)
  Receive Date: 20090722
  Receipt Date: 20090722
  Transmission Date: 20100115
  Serious: Yes (Life-Threatening)
  Sender: FDA-Public Use
  Company Number: None

PATIENT
  Age: 39 Year
  Sex: Female
  Weight: 98.8842 kg

DRUGS (2)
  1. RIFAMPIN [Suspect]
     Indication: SKIN INFECTION
     Dosage: 300 MG 2X DAILY PO
     Route: 048
     Dates: start: 20090710, end: 20090718
  2. LEXAPRO [Concomitant]

REACTIONS (7)
  - ANGER [None]
  - ANXIETY [None]
  - DEPRESSION [None]
  - DRUG INTERACTION [None]
  - MENTAL IMPAIRMENT [None]
  - NERVOUS SYSTEM DISORDER [None]
  - TREATMENT FAILURE [None]
